FAERS Safety Report 6175348-3 (Version None)
Quarter: 2009Q2

REPORT INFORMATION
  Report Type: 
  Country: None (occurrence: None)
  Receive Date: 20090429
  Receipt Date: 20090416
  Transmission Date: 20091009
  Serious: No
  Sender: FDA-Public Use
  Company Number: 2009004265

PATIENT
  Sex: Male

DRUGS (3)
  1. FENTORA [Suspect]
     Indication: INTERVERTEBRAL DISC DISORDER
     Dosage: BU
     Route: 002
  2. FENTORA [Suspect]
     Indication: MIGRAINE
     Dosage: BU
     Route: 002
  3. FENTORA [Suspect]
     Indication: NEUROPATHY PERIPHERAL
     Dosage: BU
     Route: 002

REACTIONS (2)
  - DRUG PRESCRIBING ERROR [None]
  - MEDICATION ERROR [None]
